FAERS Safety Report 6241477-9 (Version None)
Quarter: 2009Q2

REPORT INFORMATION
  Report Type: 
  Country: None (occurrence: None)
  Receive Date: 20090623
  Receipt Date: 20030828
  Transmission Date: 20091009
  Serious: Yes (Hospitalization)
  Sender: FDA-Public Use
  Company Number: DE-ROCHE-345789

PATIENT
  Sex: Male

DRUGS (48)
  1. DACLIZUMAB [Suspect]
     Dosage: BASELINE VISIT
     Route: 042
     Dates: start: 20030603
  2. DACLIZUMAB [Suspect]
     Route: 042
     Dates: start: 20030610, end: 20030611
  3. DACLIZUMAB [Suspect]
     Dosage: WEEK-2 VISIT
     Route: 042
     Dates: start: 20030617
  4. DACLIZUMAB [Suspect]
     Dosage: WEEK-4 AND 6 VISIT
     Route: 042
     Dates: start: 20030701
  5. DACLIZUMAB [Suspect]
     Route: 042
     Dates: start: 20030731
  6. MYCOPHENOLATE MOFETIL [Suspect]
     Route: 048
     Dates: start: 20030603
  7. MYCOPHENOLATE MOFETIL [Suspect]
     Route: 048
     Dates: start: 20030604, end: 20030825
  8. MYCOPHENOLATE MOFETIL [Suspect]
     Route: 048
     Dates: start: 20031113
  9. SIROLIMUS [Suspect]
     Dosage: DRUG REPORTED: RAPAMUNE
     Route: 048
     Dates: start: 20030603
  10. SIROLIMUS [Suspect]
     Route: 048
     Dates: start: 20030605
  11. SIROLIMUS [Suspect]
     Route: 048
     Dates: start: 20030614
  12. SIROLIMUS [Suspect]
     Route: 048
     Dates: start: 20030619
  13. SIROLIMUS [Suspect]
     Route: 048
     Dates: start: 20030708
  14. SIROLIMUS [Suspect]
     Route: 048
     Dates: start: 20030807
  15. SIROLIMUS [Suspect]
     Route: 048
     Dates: start: 20030903
  16. SIROLIMUS [Suspect]
     Route: 048
     Dates: start: 20030906
  17. SIROLIMUS [Suspect]
     Route: 048
     Dates: start: 20030909, end: 20030910
  18. TACROLIMUS [Suspect]
     Dosage: DRUG REPORTED: PROGRAF
     Route: 048
     Dates: start: 20030909
  19. TACROLIMUS [Suspect]
     Route: 048
     Dates: start: 20041207
  20. TACROLIMUS [Suspect]
     Route: 048
     Dates: start: 20050317
  21. TACROLIMUS [Suspect]
     Route: 048
     Dates: start: 20050901
  22. TACROLIMUS [Suspect]
     Route: 048
     Dates: start: 20051206
  23. TACROLIMUS [Suspect]
     Route: 048
     Dates: start: 20060530
  24. DECORTIN H [Suspect]
     Route: 048
     Dates: start: 20030605
  25. DECORTIN H [Suspect]
     Route: 048
     Dates: start: 20030618
  26. DECORTIN H [Suspect]
     Route: 048
     Dates: start: 20030626
  27. DECORTIN H [Suspect]
     Route: 048
     Dates: start: 20030803
  28. DECORTIN H [Suspect]
     Route: 048
     Dates: start: 20030807
  29. DECORTIN H [Suspect]
     Route: 048
     Dates: start: 20030903
  30. DECORTIN H [Suspect]
     Route: 048
     Dates: start: 20031113
  31. SOLU-DECORTIN [Suspect]
     Route: 042
     Dates: start: 20030603, end: 20030605
  32. NORVASC [Concomitant]
     Route: 048
     Dates: start: 20030604
  33. NORVASC [Concomitant]
     Route: 048
     Dates: start: 20030624
  34. NORVASC [Concomitant]
     Route: 048
     Dates: start: 20030701
  35. AMPHOTERICIN B [Concomitant]
     Route: 060
     Dates: start: 20030604, end: 20030807
  36. AMPHOTERICIN B [Concomitant]
     Route: 060
     Dates: start: 20030908
  37. BISOHEXAL [Concomitant]
     Route: 048
     Dates: start: 20030604
  38. BISOHEXAL [Concomitant]
     Route: 048
     Dates: start: 20030626, end: 20030819
  39. BISOHEXAL [Concomitant]
     Route: 048
     Dates: start: 20030828
  40. CIPROBAY [Concomitant]
     Route: 048
     Dates: start: 20030708, end: 20030807
  41. CIPROBAY [Concomitant]
     Route: 048
     Dates: start: 20030828
  42. CIPROBAY [Concomitant]
     Route: 048
     Dates: start: 20030903, end: 20030904
  43. COTRIM [Concomitant]
     Route: 048
     Dates: start: 20030609, end: 20030807
  44. CYMEVEN [Concomitant]
     Route: 042
     Dates: start: 20030603
  45. CYMEVEN [Concomitant]
     Route: 048
     Dates: start: 20030607
  46. CYMEVEN [Concomitant]
     Route: 048
     Dates: start: 20030612, end: 20030819
  47. ROCEPHIN [Concomitant]
     Route: 042
     Dates: start: 20030603, end: 20030610
  48. SIMVAHEXAL [Concomitant]
     Route: 048
     Dates: start: 20030807

REACTIONS (2)
  - LEUKOPENIA [None]
  - SOFT TISSUE INFECTION [None]
